FAERS Safety Report 8172634 (Version 2)
Quarter: 2013Q2

REPORT INFORMATION
  Report Type: Spontaneous
  Country: FR (occurrence: FR)
  Receive Date: 20111007
  Receipt Date: 20130619
  Transmission Date: 20140414
  Serious: Yes (Other)
  Sender: FDA-Public Use
  Company Number: FR-UCBSA-033404

PATIENT
  Age: 75 Year
  Sex: Female

DRUGS (10)
  1. KEPPRA [Suspect]
     Indication: STATUS EPILEPTICUS
     Dates: end: 2011
  2. KEPPRA [Suspect]
     Indication: EPILEPSY
     Dates: end: 2011
  3. KEPPRA [Suspect]
     Indication: STATUS EPILEPTICUS
     Dosage: 500 MG IN MORNING AND 500 MG IN EVENING
     Dates: start: 20110901, end: 20110905
  4. KEPPRA [Suspect]
     Indication: EPILEPSY
     Dosage: 500 MG IN MORNING AND 500 MG IN EVENING
     Dates: start: 20110901, end: 20110905
  5. PAROXETINE [Concomitant]
     Dosage: 1 TO 20 MG IN THE MORNING
  6. DEPAKINE [Concomitant]
     Dosage: 500 MG IN THE MORNING AND IN THE EVENING
  7. THERALENE [Concomitant]
     Dosage: 4%,15 DROPS IN THE NIGHT
  8. TRINITRIN PATCH [Concomitant]
  9. BENZODIAZEPINES [Concomitant]
  10. ORNITHINE [Concomitant]
     Dosage: IN THE MORNING AND IN THE EVENING

REACTIONS (1)
  - Hypoglycaemia [Recovered/Resolved]
